FAERS Safety Report 15949192 (Version 1)
Quarter: 2019Q1

REPORT INFORMATION
  Report Type: Spontaneous
  Country: DK (occurrence: DK)
  Receive Date: 20190211
  Receipt Date: 20190211
  Transmission Date: 20190417
  Serious: Yes (Other)
  Sender: FDA-Public Use
  Company Number: PHHY2019DK029668

PATIENT
  Age: 59 Year
  Sex: Female

DRUGS (2)
  1. NEOTIGASON [Suspect]
     Active Substance: ACITRETIN
     Indication: PSORIASIS
     Dosage: 10 MG, QD
     Route: 048
     Dates: start: 20170301
  2. METHOTREXATE. [Suspect]
     Active Substance: METHOTREXATE
     Indication: PSORIASIS
     Dosage: UNK (PATIENTEN HAR F?RST TAGET METHOTREXAT SOM TABLETTER DEREFTER SOM INJEKTION)
     Route: 065

REACTIONS (6)
  - Gastric cancer [Not Recovered/Not Resolved]
  - Metastases to spine [Not Recovered/Not Resolved]
  - Metastases to liver [Not Recovered/Not Resolved]
  - Cholangiocarcinoma [Not Recovered/Not Resolved]
  - Malignant peritoneal neoplasm [Not Recovered/Not Resolved]
  - Ascites [Not Recovered/Not Resolved]

NARRATIVE: CASE EVENT DATE: 2017
